FAERS Safety Report 16799185 (Version 2)
Quarter: 2019Q3

REPORT INFORMATION
  Report Type: Report from Study
  Country: DE (occurrence: DE)
  Receive Date: 20190912
  Receipt Date: 20190927
  Transmission Date: 20191005
  Serious: Yes (Life-Threatening)
  Sender: FDA-Public Use
  Company Number: DE-SUN PHARMACEUTICAL INDUSTRIES LTD-2019RR-220685

PATIENT
  Age: 50 Year
  Sex: Male

DRUGS (1)
  1. ILUMETRI 100 MG, INJEKTIONSL?SUNG [Suspect]
     Active Substance: TILDRAKIZUMAB
     Indication: PSORIASIS
     Dosage: 100 MILLIGRAM, AFTER DOSAGE TITRATION PLANNED EVERY 12 WEEKS
     Route: 058
     Dates: start: 20190509, end: 20190828

REACTIONS (1)
  - Metastases to lung [Not Recovered/Not Resolved]
